FAERS Safety Report 11863182 (Version 3)
Quarter: 2016Q1

REPORT INFORMATION
  Report Type: Report from Study
  Country: BE (occurrence: BE)
  Receive Date: 20151223
  Receipt Date: 20160122
  Transmission Date: 20160526
  Serious: Yes (Hospitalization, Other)
  Sender: FDA-Public Use
  Company Number: BE-ASTRAZENECA-2015SF27432

PATIENT
  Age: 28042 Day
  Sex: Male

DRUGS (7)
  1. ASPIRIN. [Suspect]
     Active Substance: ASPIRIN
     Indication: THROMBOSIS PROPHYLAXIS
     Dosage: 80 MG DAILY, NON-AZ PRODUCT
     Route: 048
     Dates: start: 20060613, end: 20140413
  2. ATENOLOL. [Concomitant]
     Active Substance: ATENOLOL
     Dates: start: 20060613
  3. IMATINIB [Concomitant]
     Active Substance: IMATINIB
     Dates: start: 200509
  4. TICAGRELOR [Suspect]
     Active Substance: TICAGRELOR
     Indication: THROMBOSIS PROPHYLAXIS
     Route: 048
     Dates: start: 20140313, end: 20150428
  5. LOSARTAN. [Concomitant]
     Active Substance: LOSARTAN
     Dates: start: 20130723
  6. ASPIRIN. [Suspect]
     Active Substance: ASPIRIN
     Indication: THROMBOSIS PROPHYLAXIS
     Dosage: 80 MG DAILY, NON-AZ PRODUCT
     Route: 048
     Dates: start: 20150428
  7. PANTOPRAZOLE [Concomitant]
     Active Substance: PANTOPRAZOLE SODIUM
     Dates: start: 20061215

REACTIONS (4)
  - Anaemia [Not Recovered/Not Resolved]
  - Diverticulum [Not Recovered/Not Resolved]
  - Acute myocardial infarction [Recovered/Resolved with Sequelae]
  - Small intestine polyp [Recovered/Resolved]

NARRATIVE: CASE EVENT DATE: 20150428
